FAERS Safety Report 26069111 (Version 2)
Quarter: 2025Q4

REPORT INFORMATION
  Report Type: Spontaneous
  Country: JP (occurrence: JP)
  Receive Date: 20251120
  Receipt Date: 20251218
  Transmission Date: 20260117
  Serious: Yes (Other)
  Sender: MYLAN
  Company Number: JP-VIATRISJAPAN-2025M1096865AA

PATIENT
  Age: 73 Year
  Sex: Female

DRUGS (4)
  1. ANHIBA [Suspect]
     Active Substance: ACETAMINOPHEN
     Indication: Product used for unknown indication
  2. DABRAFENIB [Concomitant]
     Active Substance: DABRAFENIB
     Indication: Product used for unknown indication
  3. CARBOPLATIN [Concomitant]
     Active Substance: CARBOPLATIN
     Indication: Product used for unknown indication
  4. PEMETREXED [Concomitant]
     Active Substance: PEMETREXED
     Indication: Product used for unknown indication

REACTIONS (1)
  - Pneumonia [Recovering/Resolving]
